FAERS Safety Report 22101251 (Version 1)
Quarter: 2023Q1

REPORT INFORMATION
  Report Type: Report from Study
  Country: US (occurrence: US)
  Receive Date: 20230316
  Receipt Date: 20230316
  Transmission Date: 20230418
  Serious: Yes (Hospitalization, Other)
  Sender: FDA-Public Use
  Company Number: US-002147023-NVSC2023US055556

PATIENT
  Sex: Male

DRUGS (2)
  1. ENTRESTO [Suspect]
     Active Substance: SACUBITRIL\VALSARTAN
     Indication: Product used for unknown indication
     Dosage: UNK (SPLITTING PILLS)
     Route: 065
  2. ENTRESTO [Suspect]
     Active Substance: SACUBITRIL\VALSARTAN
     Dosage: 1 DOSAGE FORM
     Route: 065

REACTIONS (6)
  - Influenza [Unknown]
  - Muscle disorder [Unknown]
  - Cardiac valve disease [Unknown]
  - Ejection fraction decreased [Recovering/Resolving]
  - Dyspnoea exertional [Unknown]
  - Wrong technique in product usage process [Unknown]
